FAERS Safety Report 18721894 (Version 2)
Quarter: 2021Q1

REPORT INFORMATION
  Report Type: Spontaneous
  Country: FR (occurrence: FR)
  Receive Date: 20210111
  Receipt Date: 20210216
  Transmission Date: 20210419
  Serious: Yes (Hospitalization)
  Sender: FDA-Public Use
  Company Number: FR-ROCHE-2743548

PATIENT
  Age: 37 Year
  Sex: Male

DRUGS (6)
  1. ROACTEMRA [Suspect]
     Active Substance: TOCILIZUMAB
     Dosage: SECOND INFUSION
     Route: 042
     Dates: start: 20201218
  2. ROACTEMRA [Suspect]
     Active Substance: TOCILIZUMAB
     Indication: STILL^S DISEASE
     Dosage: FIRST INFUSION
     Route: 042
     Dates: start: 20201126
  3. MORPHINE [Concomitant]
     Active Substance: MORPHINE
  4. KINERET [Concomitant]
     Active Substance: ANAKINRA
  5. COLCHICINE. [Concomitant]
     Active Substance: COLCHICINE
  6. CORTISONE [Concomitant]
     Active Substance: CORTISONE

REACTIONS (6)
  - Lung consolidation [Unknown]
  - Negative thoughts [Unknown]
  - Chest pain [Unknown]
  - Off label use [Unknown]
  - Intentional product use issue [Unknown]
  - Immune-mediated adverse reaction [Unknown]

NARRATIVE: CASE EVENT DATE: 20201228
